FAERS Safety Report 16337324 (Version 3)
Quarter: 2020Q1

REPORT INFORMATION
  Report Type: Spontaneous
  Country: US (occurrence: US)
  Receive Date: 20190521
  Receipt Date: 20200303
  Transmission Date: 20200409
  Serious: No
  Sender: FDA-Public Use
  Company Number: US-PFIZER INC-2017386323

PATIENT
  Age: 65 Year
  Sex: Male

DRUGS (24)
  1. LYRICA [Suspect]
     Active Substance: PREGABALIN
     Indication: ARTHRALGIA
     Dosage: 200 MG, DAILY (1 PILL IN AM, 1 PILL IN AFTERNOON, AND 2 PILLS ONE TO TWO HOURS BEFORE BEDTIME)
     Route: 048
     Dates: start: 20170818
  2. PROVENTIL [Concomitant]
     Active Substance: ALBUTEROL
     Indication: WHEEZING
  3. LYRICA [Suspect]
     Active Substance: PREGABALIN
     Dosage: 5 DF, (ONLY TAKES 5 PILLS INSTEAD OF THE 6 HE^S SUPPOSED TO TAKE)
  4. FLEXERIL [Concomitant]
     Active Substance: CYCLOBENZAPRINE HYDROCHLORIDE
     Dosage: 0.5 DF, ONCE DAILY (1 TO 2 HOURS BEFORE BEDTIME FOR 3 DAYS, IF TOLERATING THEN INCREASE)
     Route: 048
  5. DESYREL [Concomitant]
     Active Substance: TRAZODONE HYDROCHLORIDE
     Dosage: 100 MG, AS NEEDED (AT BED TIME)
     Route: 048
  6. NORCO [Concomitant]
     Active Substance: ACETAMINOPHEN\HYDROCODONE BITARTRATE
     Indication: PAIN
     Dosage: 1 DF, AS NEEDED (4 TO 6 HOURS)
     Route: 048
  7. ATIVAN [Concomitant]
     Active Substance: LORAZEPAM
     Dosage: 1 MG, UNK
  8. ENBREL [Concomitant]
     Active Substance: ETANERCEPT
     Dosage: 50 MG/ML, WEEKLY
     Route: 058
  9. PRINIVIL [Concomitant]
     Active Substance: LISINOPRIL
     Dosage: 2.5 MG (HALF TABLET), ONCE DAILY
     Route: 048
  10. ZESTRIL [Concomitant]
     Active Substance: LISINOPRIL
     Dosage: 2.5 MG (HALF TABLET), ONCE DAILY
     Route: 048
  11. PROAIR HFA [Concomitant]
     Active Substance: ALBUTEROL SULFATE
     Indication: DYSPNOEA
     Dosage: 2 PUFFS, AS NEEDED (EVERY 6 HOURS)
     Route: 055
  12. VENTOLIN [Concomitant]
     Active Substance: ALBUTEROL SULFATE
     Indication: WHEEZING
  13. LYRICA [Suspect]
     Active Substance: PREGABALIN
     Dosage: 200 MG, DAILY (1 CAP IN THE MORNING, 1 CAP IN THE AFTERNOON, AND 2 CAPS 1-2 HOURS BEFORE BEDTIME)
     Route: 048
     Dates: start: 20190201
  14. ASPIRIN 81 [Concomitant]
     Active Substance: ASPIRIN
     Dosage: 81 MG, ONCE DAILY
     Route: 048
  15. LIPITOR [Concomitant]
     Active Substance: ATORVASTATIN CALCIUM
     Dosage: 40 MG, ONCE DAILY
     Route: 048
  16. NITROSTAT [Concomitant]
     Active Substance: NITROGLYCERIN
     Indication: CHEST PAIN
     Dosage: 0.4 MG, AS NEEDED (DISSOLVE UNDER TONGUE)
     Route: 060
  17. DURAGESIC [Concomitant]
     Active Substance: FENTANYL
     Dosage: 1 PATCH, ALTERNATE DAY (EVERY 48 HOURS)
     Route: 062
  18. IMDUR [Concomitant]
     Active Substance: ISOSORBIDE MONONITRATE
     Dosage: 30 MG, ONCE DAILY (IN THE MORNING)
     Route: 048
  19. PROAIR HFA [Concomitant]
     Active Substance: ALBUTEROL SULFATE
     Indication: WHEEZING
  20. PROVENTIL [Concomitant]
     Active Substance: ALBUTEROL
     Indication: DYSPNOEA
     Dosage: 2 PUFFS, AS NEEDED (EVERY 6 HOURS)
     Route: 055
  21. LEXAPRO [Concomitant]
     Active Substance: ESCITALOPRAM OXALATE
     Dosage: 20 MG, ONCE DAILY
     Route: 048
  22. FOLIC ACID. [Concomitant]
     Active Substance: FOLIC ACID
     Dosage: 3 MG, ONCE DAILY
     Route: 048
  23. TOPROL XL [Concomitant]
     Active Substance: METOPROLOL SUCCINATE
     Dosage: 12.5 MG (HALF TABLET), ONCE DAILY
     Route: 048
  24. VENTOLIN [Concomitant]
     Active Substance: ALBUTEROL SULFATE
     Indication: DYSPNOEA
     Dosage: 2 PUFFS, AS NEEDED (EVERY 6 HOURS)
     Route: 055

REACTIONS (6)
  - Pain [Unknown]
  - Insomnia [Unknown]
  - Weight increased [Unknown]
  - Off label use [Unknown]
  - Drug ineffective for unapproved indication [Unknown]
  - Intentional product use issue [Unknown]

NARRATIVE: CASE EVENT DATE: 20170818
